APPROVED DRUG PRODUCT: DIFLUPREDNATE
Active Ingredient: DIFLUPREDNATE
Strength: 0.05%
Dosage Form/Route: EMULSION;OPHTHALMIC
Application: A211526 | Product #001 | TE Code: AB
Applicant: AMNEAL EU LTD
Approved: Nov 17, 2021 | RLD: No | RS: No | Type: RX